FAERS Safety Report 5627762-X (Version None)
Quarter: 2008Q1

REPORT INFORMATION
  Report Type: 
  Country: None (occurrence: None)
  Receive Date: 20080215
  Receipt Date: 20080212
  Transmission Date: 20080703
  Serious: Yes (Hospitalization)
  Sender: FDA-Public Use
  Company Number: A0709758A

PATIENT
  Sex: Female

DRUGS (1)
  1. PARNATE [Suspect]
     Indication: DRUG USE FOR UNKNOWN INDICATION
     Dosage: 70MGD PER DAY
     Route: 048
     Dates: start: 19780101

REACTIONS (1)
  - OVERDOSE [None]
